FAERS Safety Report 6425829-X (Version None)
Quarter: 2009Q4

REPORT INFORMATION
  Report Type: 
  Country: None (occurrence: None)
  Receive Date: 20091103
  Receipt Date: 20090212
  Transmission Date: 20100525
  Serious: No
  Sender: FDA-Public Use
  Company Number: US-ABBOTT-09P-163-0557416-00

PATIENT
  Sex: Male
  Weight: 102.15 kg

DRUGS (10)
  1. BIAXIN [Suspect]
     Indication: RESPIRATORY TRACT CONGESTION
     Route: 048
     Dates: start: 20090206, end: 20090207
  2. BIAXIN [Suspect]
     Indication: EAR INFECTION
  3. BIAXIN [Suspect]
     Indication: DIZZINESS
  4. PREVACID [Concomitant]
     Indication: GASTROOESOPHAGEAL REFLUX DISEASE
     Route: 048
  5. PREVACID [Concomitant]
     Indication: HIATUS HERNIA
  6. ZANTAC [Concomitant]
     Indication: URTICARIA
     Route: 048
  7. ALLEGRA [Concomitant]
     Indication: SEASONAL ALLERGY
     Route: 048
  8. ALLEGRA [Concomitant]
     Indication: URTICARIA
  9. ASPIRIN [Concomitant]
     Indication: FAMILIAL RISK FACTOR
     Route: 048
  10. SIMETHICONE [Concomitant]
     Indication: DRUG USE FOR UNKNOWN INDICATION
     Route: 048

REACTIONS (2)
  - PARAESTHESIA [None]
  - PRURITUS [None]
